FAERS Safety Report 15565486 (Version 1)
Quarter: 2018Q4

REPORT INFORMATION
  Report Type: Spontaneous
  Country: US (occurrence: US)
  Receive Date: 20181030
  Receipt Date: 20181030
  Transmission Date: 20190205
  Serious: Yes (Other)
  Sender: FDA-Public Use
  Company Number: US-ENDO PHARMACEUTICALS INC-2018-042597

PATIENT
  Age: 51 Year
  Sex: Male

DRUGS (10)
  1. TESTIM [Suspect]
     Active Substance: TESTOSTERONE
     Dosage: APPLY AS DIRECTED
     Route: 061
     Dates: start: 20050105
  2. TESTOSTERONE                       /00103103/ [Suspect]
     Active Substance: TESTOSTERONE
     Dosage: APPLY 1 GRAM TO THIGH ONCE A DAY
     Route: 061
     Dates: start: 20081114
  3. BYSTOLIC [Concomitant]
     Active Substance: NEBIVOLOL HYDROCHLORIDE
     Indication: PRODUCT USED FOR UNKNOWN INDICATION
     Dosage: 10 MG, DAILY
     Route: 048
  4. ANDROGEL [Suspect]
     Active Substance: TESTOSTERONE
     Indication: ANDROGEN REPLACEMENT THERAPY
     Dosage: USE 4 PUMPS AS DIRECTED
     Route: 062
     Dates: start: 20080328
  5. ASPIRIN                            /00002701/ [Concomitant]
     Active Substance: ASPIRIN
     Indication: PRODUCT USED FOR UNKNOWN INDICATION
     Dosage: 325 MG, UNKNOWN
     Route: 048
  6. TESTOSTERONE                       /00103103/ [Suspect]
     Active Substance: TESTOSTERONE
     Indication: ANDROGEN REPLACEMENT THERAPY
     Dosage: APPLY 1 GRAM TO THIGH ONCE A DAY
     Route: 061
     Dates: start: 20100210
  7. TESTOSTERONE                       /00103103/ [Suspect]
     Active Substance: TESTOSTERONE
     Dosage: APPLY 1 GRAM TO THIGH ONCE A DAY
     Route: 061
     Dates: start: 20110118
  8. NITROGLYCERIN. [Concomitant]
     Active Substance: NITROGLYCERIN
     Indication: CHEST PAIN
     Dosage: 0.4 MG, UNKNOWN
     Route: 060
  9. VALTURNA [Concomitant]
     Active Substance: ALISKIREN HEMIFUMARATE\VALSARTAN
     Indication: PRODUCT USED FOR UNKNOWN INDICATION
     Dosage: 1 DF, DAILY
     Route: 048
  10. TESTIM [Suspect]
     Active Substance: TESTOSTERONE
     Indication: ANDROGEN REPLACEMENT THERAPY
     Dosage: 5 G, BID
     Route: 061
     Dates: start: 20040123

REACTIONS (2)
  - Coronary artery disease [Unknown]
  - Angina pectoris [Unknown]

NARRATIVE: CASE EVENT DATE: 20101228
